FAERS Safety Report 8986282 (Version 1)
Quarter: 2012Q4

REPORT INFORMATION
  Report Type: 
  Country: US (occurrence: US)
  Receive Date: 20121226
  Receipt Date: 20121226
  Transmission Date: 20130627
  Serious: Yes (Other)
  Sender: FDA-Public Use
  Company Number: US-ASTRAZENECA-2012SE94549

PATIENT
  Age: 80 Year
  Sex: Female
  Weight: 70.3 kg

DRUGS (2)
  1. NEXIUM [Suspect]
     Route: 048
  2. TAKES OTHER MEDICATION [Concomitant]

REACTIONS (2)
  - Hiatus hernia [Unknown]
  - Dyspnoea [Unknown]
